FAERS Safety Report 23506405 (Version 1)
Quarter: 2024Q1

REPORT INFORMATION
  Report Type: Spontaneous
  Country: US (occurrence: US)
  Receive Date: 20240209
  Receipt Date: 20240209
  Transmission Date: 20240410
  Serious: No
  Sender: FDA-Public Use
  Company Number: US-BIOGEN-2023BI01179907

PATIENT
  Sex: Male

DRUGS (8)
  1. VUMERITY [Suspect]
     Active Substance: DIROXIMEL FUMARATE
     Indication: Multiple sclerosis
     Dosage: TAKE 2 CAPSULES (462 MG TOTAL) BY MOUTH 2 (TWO) TIMES DAILY
     Route: 050
     Dates: start: 20210224
  2. ASPIRIN [Concomitant]
     Active Substance: ASPIRIN
     Route: 050
  3. CLARITIN [Concomitant]
     Active Substance: LORATADINE
     Route: 050
  4. EXCEDRIN [Concomitant]
     Active Substance: ACETAMINOPHEN\ASPIRIN\CAFFEINE
     Indication: Migraine
     Route: 050
  5. SUMATRIPTAN [Concomitant]
     Active Substance: SUMATRIPTAN
     Route: 050
  6. TOPIRAMATE [Concomitant]
     Active Substance: TOPIRAMATE
     Route: 050
  7. ATIVAN [Concomitant]
     Active Substance: LORAZEPAM
     Route: 050
  8. ATIVAN [Concomitant]
     Active Substance: LORAZEPAM
     Route: 050

REACTIONS (3)
  - Product dose omission issue [Unknown]
  - Multiple sclerosis [Unknown]
  - Flushing [Unknown]
